FAERS Safety Report 26010263 (Version 1)
Quarter: 2025Q4

REPORT INFORMATION
  Report Type: Spontaneous
  Country: EU (occurrence: EU)
  Receive Date: 20251107
  Receipt Date: 20251107
  Transmission Date: 20260117
  Serious: Yes (Hospitalization)
  Sender: ABBVIE
  Company Number: EU-DCGMA-25205948

PATIENT
  Age: 21 Year
  Sex: Male
  Weight: 76 kg

DRUGS (5)
  1. CIPRALEX [Suspect]
     Active Substance: ESCITALOPRAM OXALATE
     Indication: Depression
     Dosage: 10 MG?DAILY DOSE: 5 MG EVERY 1 DAY
     Route: 048
  2. URSODEOXYCHOL ACID [Concomitant]
     Indication: Cystic fibrosis
     Dosage: 250 MG 2-0-2?DAILY DOSE: 1000 MG EVERY 1 DAY
     Route: 048
  3. ELEXACAFTOR\IVACAFTOR\TEZACAFTOR [Suspect]
     Active Substance: ELEXACAFTOR\IVACAFTOR\TEZACAFTOR
     Indication: Cystic fibrosis
     Dosage: 75 MG/50MG/100 MG
     Route: 048
  4. MOVICOL JUNIOR NEUTRAL [Concomitant]
     Indication: Product used for unknown indication
     Route: 048
  5. KALYDECO [Suspect]
     Active Substance: IVACAFTOR
     Indication: Cystic fibrosis
     Dosage: DAILY DOSE: 150 MG EVERY 1 DAY
     Route: 048

REACTIONS (2)
  - Blood creatine phosphokinase increased [Unknown]
  - Generalised tonic-clonic seizure [Unknown]
